FAERS Safety Report 10432357 (Version 1)
Quarter: 2014Q3

REPORT INFORMATION
  Report Type: Spontaneous
  Country: US (occurrence: None)
  Receive Date: 20140815
  Receipt Date: 20140815
  Transmission Date: 20150326
  Serious: Yes (Hospitalization)
  Sender: FDA-Public Use
  Company Number: A-NJ2014-99465

PATIENT
  Age: 61 Year
  Sex: Male

DRUGS (4)
  1. VELETRI [Suspect]
     Active Substance: EPOPROSTENOL
     Indication: PULMONARY ARTERIAL HYPERTENSION
     Dosage: PER MIN
     Route: 042
     Dates: start: 201312
  2. SILDENAFIL [Concomitant]
     Active Substance: SILDENAFIL
  3. MIDODRINE [Concomitant]
     Active Substance: MIDODRINE
  4. OPSUMIT [Suspect]
     Active Substance: MACITENTAN
     Indication: PULMONARY ARTERIAL HYPERTENSION
     Route: 048
     Dates: start: 20140521

REACTIONS (5)
  - Hypotension [None]
  - Right ventricular failure [None]
  - Pleural effusion [None]
  - Pericardial effusion [None]
  - Fluid overload [None]

NARRATIVE: CASE EVENT DATE: 20140513
